FAERS Safety Report 4780068-3 (Version None)
Quarter: 2005Q3

REPORT INFORMATION
  Report Type: 
  Country: None (occurrence: None)
  Receive Date: 20050927
  Receipt Date: 20050107
  Transmission Date: 20060218
  Serious: Yes (Hospitalization, Disabling)
  Sender: FDA-Public Use
  Company Number: DE-MERCK-0501DEU00119

PATIENT
  Age: 69 Year
  Sex: Male
  Weight: 110 kg

DRUGS (7)
  1. VIOXX [Suspect]
     Route: 065
     Dates: start: 20030101
  2. VIOXX [Suspect]
     Route: 048
     Dates: start: 20040202
  3. ASPIRIN [Concomitant]
     Route: 048
  4. RAMIPRIL [Concomitant]
     Route: 048
  5. MAGNESIUM OXIDE [Concomitant]
     Route: 048
  6. SIMVASTATIN [Concomitant]
     Route: 048
  7. RAMIPRIL [Concomitant]
     Route: 065

REACTIONS (2)
  - BONE PAIN [None]
  - CEREBRAL HAEMORRHAGE [None]
